FAERS Safety Report 8701692 (Version 2)
Quarter: 2013Q4

REPORT INFORMATION
  Report Type: Spontaneous
  Country: US (occurrence: US)
  Receive Date: 20120803
  Receipt Date: 20131105
  Transmission Date: 20140711
  Serious: Yes (Other)
  Sender: FDA-Public Use
  Company Number: US-009507513-1207USA010754

PATIENT
  Age: 82 Year
  Sex: Male

DRUGS (13)
  1. ZOCOR [Suspect]
     Dosage: 10 MG, UNK
     Route: 048
  2. DALIRESP [Suspect]
     Dosage: 500 MICROGRAM, UNK
  3. LEVAQUIN [Suspect]
  4. CENTRUM SILVER [Concomitant]
  5. FORADIL [Concomitant]
  6. ASCORBIC ACID [Concomitant]
  7. VITAMIN D (UNSPECIFIED) [Concomitant]
  8. VITAMIN E [Concomitant]
  9. ASPIRIN [Concomitant]
  10. SPIRIVA [Concomitant]
  11. ASMANEX TWISTHALER [Concomitant]
     Dosage: 220 MICROGRAM, UNK
     Route: 055
  12. ALLOPURINOL [Concomitant]
     Dosage: 300 MG, UNK
  13. ALBUTEROL [Concomitant]

REACTIONS (15)
  - Dysgeusia [Unknown]
  - Tremor [Unknown]
  - Muscular weakness [Unknown]
  - Asthenia [Unknown]
  - Gastrooesophageal reflux disease [Unknown]
  - Dry mouth [Unknown]
  - Nausea [Unknown]
  - Weight decreased [Unknown]
  - Ageusia [Unknown]
  - Oedema peripheral [Unknown]
  - Frequent bowel movements [Unknown]
  - Eructation [Unknown]
  - Decreased appetite [Unknown]
  - Swelling face [Unknown]
  - Bronchitis [Unknown]
